FAERS Safety Report 8344500-0 (Version None)
Quarter: 2012Q2

REPORT INFORMATION
  Report Type: 
  Country: None (occurrence: None)
  Receive Date: 20120508
  Receipt Date: 20120503
  Transmission Date: 20120825
  Serious: Yes (Hospitalization)
  Sender: FDA-Public Use
  Company Number: PHHO2011US17909

PATIENT
  Sex: Male
  Weight: 95 kg

DRUGS (14)
  1. TOPROL-XL [Concomitant]
     Indication: HYPERTENSION
     Dosage: 25 MG, QD
     Route: 048
     Dates: start: 20050101
  2. ALTACE [Concomitant]
     Indication: HYPERTENSION
     Dosage: 10 MG, TID
     Route: 048
     Dates: start: 20050101
  3. PLACEBO [Suspect]
     Indication: GOUTY ARTHRITIS
     Dosage: CODE NOT BROKEN
     Route: 048
     Dates: start: 20110826, end: 20110826
  4. CRESTOR [Concomitant]
     Indication: HYPERLIPIDAEMIA
     Dosage: 20 MG, QD
     Route: 048
     Dates: start: 20080101
  5. ILARIS [Suspect]
     Dosage: CODE NOT BROKEN
     Route: 048
     Dates: start: 20110826, end: 20110826
  6. PLAVIX [Concomitant]
     Indication: CORONARY ARTERY DISEASE
     Dosage: 75 MG, QD
     Route: 048
     Dates: start: 20050101
  7. AMLODIPINE [Concomitant]
     Indication: HYPERTENSION
     Dosage: 10 MG, QD
     Route: 048
     Dates: start: 19950101
  8. LEVEMIR [Concomitant]
     Indication: TYPE 2 DIABETES MELLITUS
     Dosage: 10 U, QD
     Route: 058
     Dates: start: 20110101
  9. BLINDED NO TREATMENT RECEIVED [Suspect]
     Indication: GOUTY ARTHRITIS
     Dosage: CODE NOT BROKEN
     Route: 048
     Dates: start: 20110826, end: 20110826
  10. TRIAMCINOLONE ACETONIDE [Suspect]
     Indication: GOUTY ARTHRITIS
     Dosage: CODE NOT BROKEN
     Route: 048
     Dates: start: 20110826, end: 20110826
  11. GLUCOVANCE [Concomitant]
     Indication: TYPE 2 DIABETES MELLITUS
     Dosage: 5/500 MG, QD
     Route: 048
     Dates: start: 20060101
  12. ILARIS [Suspect]
     Indication: GOUTY ARTHRITIS
     Dosage: CODE NOT BROKEN
     Route: 048
     Dates: start: 20110826, end: 20110826
  13. LASIX [Concomitant]
     Indication: CORONARY ARTERY DISEASE
     Dosage: 20 MG, QD
     Route: 048
     Dates: start: 20050101
  14. IMDUR [Concomitant]
     Indication: TYPE 2 DIABETES MELLITUS
     Dosage: 60 MG, QD
     Route: 048
     Dates: start: 20050101

REACTIONS (1)
  - STAPHYLOCOCCAL INFECTION [None]
